FAERS Safety Report 7265617-8 (Version None)
Quarter: 2011Q1

REPORT INFORMATION
  Report Type: 
  Country: None (occurrence: None)
  Receive Date: 20110131
  Receipt Date: 20110119
  Transmission Date: 20110831
  Serious: Yes (Hospitalization)
  Sender: FDA-Public Use
  Company Number: ES-ROCHE-731764

PATIENT
  Sex: Male
  Weight: 70 kg

DRUGS (9)
  1. GABAPENTINA [Concomitant]
     Dates: start: 20100209, end: 20101005
  2. TRYPTIZOL [Concomitant]
     Dates: start: 20100209, end: 20101005
  3. OMEPRAZOLE [Concomitant]
     Dates: start: 20100126
  4. LEUCOVORIN CALCIUM [Suspect]
     Dosage: PERMANENTLY DISCONTINUED. LAST DOSE PRIOR TO SAE: 21 SEPTEMBER 2010, FORM: INFUSION
     Route: 042
     Dates: start: 20090113, end: 20101005
  5. BEVACIZUMAB [Suspect]
     Dosage: LAST DOSE PRIOR TO SAE: 21 SEPTEMBER 2010,  PERMANANTLY DISCONTINUED, FORM: INFUSION
     Route: 042
     Dates: start: 20100113, end: 20101005
  6. FLUOROURACIL [Suspect]
     Dosage: DOSAGE FORM: INFUSION.
     Route: 040
     Dates: start: 20100113, end: 20100921
  7. FLUOROURACIL [Suspect]
     Dosage: FORM: BOLUS, LAST DOSE PRIOR TO SAE: 21 SEPTEMBER 2010,  PERMANANTLY DISCONTINUED
     Route: 040
     Dates: start: 20100113, end: 20101005
  8. IRINOTECAN HCL [Suspect]
     Dosage: LAST DOSE PRIOR TO SAE: 21 SEPTEMBER 2010, PERMANENTLY DISCONTINUED, FORM: INFUSION
     Route: 042
     Dates: start: 20100113, end: 20101005
  9. POLARAMINE [Concomitant]
     Dates: start: 20100906, end: 20100906

REACTIONS (1)
  - GASTROINTESTINAL OBSTRUCTION [None]
